FAERS Safety Report 5215761-1 (Version None)
Quarter: 2007Q1

REPORT INFORMATION
  Report Type: 
  Country: None (occurrence: None)
  Receive Date: 20070118
  Receipt Date: 20070115
  Transmission Date: 20070707
  Serious: Yes (Death)
  Sender: FDA-Public Use
  Company Number: 163-20785-07010742

PATIENT
  Age: 75 Year
  Sex: Male

DRUGS (4)
  1. THALOMID [Suspect]
     Indication: MULTIPLE MYELOMA
     Dosage: SEE IMAGE, ORAL
     Route: 048
     Dates: start: 20040211, end: 20040426
  2. THALOMID [Suspect]
     Indication: MULTIPLE MYELOMA
     Dosage: SEE IMAGE, ORAL
     Route: 048
     Dates: start: 20040427, end: 20040614
  3. THALOMID [Suspect]
     Indication: MULTIPLE MYELOMA
     Dosage: SEE IMAGE, ORAL
     Route: 048
     Dates: start: 20040615, end: 20061108
  4. THALOMID [Suspect]

REACTIONS (1)
  - STAPHYLOCOCCAL INFECTION [None]
